FAERS Safety Report 15606342 (Version 2)
Quarter: 2018Q4

REPORT INFORMATION
  Report Type: Spontaneous
  Country: AT (occurrence: AT)
  Receive Date: 20181112
  Receipt Date: 20181121
  Transmission Date: 20190205
  Serious: Yes (Life-Threatening, Hospitalization, Other)
  Sender: FDA-Public Use
  Company Number: AT-ACCORD-091495

PATIENT
  Sex: Male
  Weight: 2.25 kg

DRUGS (1)
  1. SERTRALINE [Suspect]
     Active Substance: SERTRALINE HYDROCHLORIDE
     Indication: DEPRESSION
     Dosage: FROM 20 WEEKS OF GESTATION ONWARDS
     Route: 064

REACTIONS (3)
  - Foetal exposure during pregnancy [Unknown]
  - Loss of consciousness [Recovered/Resolved]
  - Drug withdrawal syndrome neonatal [Recovered/Resolved]
